FAERS Safety Report 20049469 (Version 1)
Quarter: 2021Q4

REPORT INFORMATION
  Report Type: Spontaneous
  Country: US (occurrence: US)
  Receive Date: 20211109
  Receipt Date: 20211109
  Transmission Date: 20220303
  Serious: No
  Sender: FDA-Public Use
  Company Number: US-VERTEX PHARMACEUTICALS-2021-017513

PATIENT

DRUGS (1)
  1. TRIKAFTA [Suspect]
     Active Substance: ELEXACAFTOR\IVACAFTOR\TEZACAFTOR
     Indication: Cystic fibrosis
     Dosage: FREQ. UNK.
     Route: 048

REACTIONS (6)
  - Depression [Unknown]
  - Insomnia [Unknown]
  - Anxiety [Unknown]
  - Anger [Unknown]
  - Feeling abnormal [Unknown]
  - Restlessness [Unknown]
